FAERS Safety Report 9124821 (Version 3)
Quarter: 2013Q2

REPORT INFORMATION
  Report Type: Spontaneous
  Country: FR (occurrence: FR)
  Receive Date: 20130227
  Receipt Date: 20130404
  Transmission Date: 20140414
  Serious: Yes (Disabling, Other)
  Sender: FDA-Public Use
  Company Number: FR-009507513-1302FRA009633

PATIENT
  Sex: Female

DRUGS (5)
  1. FOSAMAX [Suspect]
     Dosage: 70 MG, QW
     Route: 048
     Dates: start: 200103, end: 201203
  2. FONZYLANE [Concomitant]
     Indication: TEMPORAL ARTERITIS
  3. PRAXILENE [Concomitant]
     Indication: TEMPORAL ARTERITIS
  4. APROVEL [Concomitant]
     Indication: HYPERTENSION
  5. MOPRAL (OMEPRAZOLE) [Concomitant]
     Indication: ULCER

REACTIONS (2)
  - Tooth abscess [Unknown]
  - Osteonecrosis of jaw [Unknown]
